FAERS Safety Report 21219401 (Version 1)
Quarter: 2022Q3

REPORT INFORMATION
  Report Type: Spontaneous
  Country: BR (occurrence: BR)
  Receive Date: 20220817
  Receipt Date: 20220817
  Transmission Date: 20221026
  Serious: Yes (Other)
  Sender: FDA-Public Use
  Company Number: BR-ENDO PHARMACEUTICALS INC-2022-004876

PATIENT
  Age: 18 Month
  Sex: Female

DRUGS (5)
  1. MELPHALAN HYDROCHLORIDE [Suspect]
     Active Substance: MELPHALAN HYDROCHLORIDE
     Indication: Retinoblastoma
     Dosage: 30 ?G, UNKNOWN (8 ?G/ML, 3 INJECTIONS)
     Route: 031
  2. MELPHALAN HYDROCHLORIDE [Suspect]
     Active Substance: MELPHALAN HYDROCHLORIDE
     Dosage: 4 MG, UNKNOWN (0.4 MG/KG)
     Route: 013
  3. VINCRISTINE [Concomitant]
     Active Substance: VINCRISTINE
     Indication: Retinoblastoma
     Dosage: UNK UNKNOWN, MONTHLY (SIX CYCLES)
     Route: 042
  4. ETOPOSIDE [Concomitant]
     Active Substance: ETOPOSIDE
     Indication: Retinoblastoma
     Dosage: UNK UNKNOWN, MONTHLY (SIX CYCLES)
     Route: 042
  5. CARBOPLATIN [Concomitant]
     Active Substance: CARBOPLATIN
     Indication: Retinoblastoma
     Dosage: UNK UNKNOWN, MONTHLY (SIX CYCLES)
     Route: 042

REACTIONS (2)
  - Retinal toxicity [Recovered/Resolved]
  - Off label use [Recovered/Resolved]
